FAERS Safety Report 6510270-1 (Version None)
Quarter: 2009Q4

REPORT INFORMATION
  Report Type: 
  Country: None (occurrence: None)
  Receive Date: 20091221
  Receipt Date: 20091221
  Transmission Date: 20100525
  Serious: Yes (Other)
  Sender: FDA-Public Use
  Company Number: None

PATIENT
  Sex: Male
  Weight: 66.3 kg

DRUGS (9)
  1. TAXOTERE [Suspect]
     Indication: PROSTATE CANCER
     Dosage: 130MG Q21 DAYS IV DRIP
     Route: 041
     Dates: start: 20091210, end: 20091210
  2. TAXOTERE [Suspect]
     Indication: PROSTATE CANCER
     Dosage: 130MG Q21 DAYS IV DRIP
     Route: 041
     Dates: start: 20091210, end: 20091210
  3. FLOMAX [Concomitant]
  4. LEXAPRO [Concomitant]
  5. TYLENOL (CAPLET) [Concomitant]
  6. DEXAMETHASONE TAB [Concomitant]
  7. TAXOTERE [Concomitant]
  8. PREDNISONE [Concomitant]
  9. DEXAMETHASONE [Concomitant]

REACTIONS (6)
  - BLOOD GLUCOSE INCREASED [None]
  - BLOOD PRESSURE DIASTOLIC DECREASED [None]
  - DYSPNOEA [None]
  - NAUSEA [None]
  - RETCHING [None]
  - VOMITING [None]
